FAERS Safety Report 4330406-0 (Version None)
Quarter: 2004Q1

REPORT INFORMATION
  Report Type: 
  Country: None (occurrence: None)
  Receive Date: 20040330
  Receipt Date: 20040323
  Transmission Date: 20041129
  Serious: Yes (Hospitalization)
  Sender: FDA-Public Use
  Company Number: MK200403-0219-1

PATIENT
  Age: 40 Year
  Sex: Female

DRUGS (10)
  1. ANAFRANIL [Suspect]
     Dosage: 75 MG
  2. XANAX [Suspect]
  3. LORAZEPAM [Suspect]
  4. TRANXENE [Suspect]
  5. CUPHALAC [Concomitant]
  6. PRIMPERAN INJ [Concomitant]
  7. TRIFULCAN [Concomitant]
  8. SORBITOL [Concomitant]
  9. MYOLSTAN [Concomitant]
  10. MOPRAL [Concomitant]

REACTIONS (5)
  - CAESAREAN SECTION [None]
  - COMPLICATIONS OF MATERNAL EXPOSURE TO THERAPEUTIC DRUGS [None]
  - POLYHYDRAMNIOS [None]
  - PREMATURE BABY [None]
  - SCIATICA [None]
